FAERS Safety Report 7685938-4 (Version None)
Quarter: 2011Q3

REPORT INFORMATION
  Report Type: 
  Country: None (occurrence: None)
  Receive Date: 20110816
  Receipt Date: 20110804
  Transmission Date: 20111222
  Serious: Yes (Other)
  Sender: FDA-Public Use
  Company Number: PHEH2011US00730

PATIENT
  Weight: 78 kg

DRUGS (1)
  1. SANDOSTATIN LAR [Suspect]
     Indication: CARCINOID TUMOUR

REACTIONS (2)
  - WEIGHT DECREASED [None]
  - DEMENTIA ALZHEIMER'S TYPE [None]
